FAERS Safety Report 7288306-2 (Version None)
Quarter: 2011Q1

REPORT INFORMATION
  Report Type: 
  Country: None (occurrence: None)
  Receive Date: 20110208
  Receipt Date: 20110208
  Transmission Date: 20110831
  Serious: Yes (Hospitalization)
  Sender: FDA-Public Use
  Company Number: None

PATIENT
  Age: 61 Year
  Sex: Male
  Weight: 74.8435 kg

DRUGS (2)
  1. TRAMADOL HYDROCHLORIDE/ACETAMINOPHEN [Suspect]
     Indication: ANALGESIC THERAPY
     Dosage: 1 OR 2 TABLETS EVERY 6 HOURS PO
     Route: 048
     Dates: start: 20110202, end: 20110202
  2. TRAMADOL HYDROCHLORIDE/ACETAMINOPHEN [Suspect]
     Indication: TOOTH EXTRACTION
     Dosage: 1 OR 2 TABLETS EVERY 6 HOURS PO
     Route: 048
     Dates: start: 20110202, end: 20110202

REACTIONS (4)
  - LOSS OF CONSCIOUSNESS [None]
  - PRESYNCOPE [None]
  - COORDINATION ABNORMAL [None]
  - NAUSEA [None]
